FAERS Safety Report 10253114 (Version 1)
Quarter: 2014Q2

REPORT INFORMATION
  Report Type: Spontaneous
  Country: US (occurrence: US)
  Receive Date: 20140623
  Receipt Date: 20140623
  Transmission Date: 20141212
  Serious: No
  Sender: FDA-Public Use
  Company Number: US-ZOGENIX, INC.-2011ZX000407

PATIENT
  Sex: Female

DRUGS (1)
  1. SUMAVEL DOSEPRO [Suspect]
     Indication: MIGRAINE
     Dates: start: 20110810, end: 20110810

REACTIONS (4)
  - Eye pain [Not Recovered/Not Resolved]
  - Device malfunction [Recovered/Resolved]
  - Hypoaesthesia eye [Not Recovered/Not Resolved]
  - Accidental exposure to product [Recovered/Resolved]
